FAERS Safety Report 5563907-8 (Version None)
Quarter: 2007Q4

REPORT INFORMATION
  Report Type: 
  Country: None (occurrence: None)
  Receive Date: 20071217
  Receipt Date: 20071212
  Transmission Date: 20080405
  Serious: Yes (Other)
  Sender: FDA-Public Use
  Company Number: CA-WYE-G00771807

PATIENT
  Sex: Female

DRUGS (1)
  1. EFFEXOR XR [Suspect]
     Indication: DEPRESSION
     Route: 048
     Dates: start: 20030701, end: 20040201

REACTIONS (3)
  - INTENTIONAL OVERDOSE [None]
  - SELF MUTILATION [None]
  - SUICIDE ATTEMPT [None]
